FAERS Safety Report 24075124 (Version 1)
Quarter: 2024Q3

REPORT INFORMATION
  Report Type: Spontaneous
  Country: US (occurrence: None)
  Receive Date: 20240710
  Receipt Date: 20240710
  Transmission Date: 20241016
  Serious: Yes (Hospitalization, Other)
  Sender: Public
  Company Number: None

PATIENT
  Age: 69 Year
  Sex: Female
  Weight: 72 kg

DRUGS (1)
  1. DILTIAZEM [Suspect]
     Active Substance: DILTIAZEM
     Indication: Tachycardia
     Dosage: OTHER FREQUENCY : ONCE;?
     Route: 040
     Dates: start: 20240708, end: 20240708

REACTIONS (4)
  - Infusion site rash [None]
  - Infusion site pain [None]
  - Rash pruritic [None]
  - Therapy interrupted [None]

NARRATIVE: CASE EVENT DATE: 20240708
